FAERS Safety Report 20073660 (Version 1)
Quarter: 2021Q4

REPORT INFORMATION
  Report Type: Spontaneous
  Country: US (occurrence: None)
  Receive Date: 20211103
  Receipt Date: 20211103
  Transmission Date: 20220303
  Serious: Yes (Life-Threatening, Hospitalization, Disabling)
  Sender: FDA-Public Use
  Company Number: None

PATIENT
  Age: 39 Year
  Sex: Male
  Weight: 90 kg

DRUGS (9)
  1. LOTRIMIN ANTIFUNGAL (MICONAZOLE NITRATE) [Suspect]
     Active Substance: MICONAZOLE NITRATE
     Indication: Tinea pedis
     Dosage: OTHER QUANTITY : 1 SPRAY(S);?FREQUENCY : DAILY;?
     Route: 061
     Dates: start: 20200701, end: 20210630
  2. TINACTIN [Suspect]
     Active Substance: TOLNAFTATE
     Indication: Tinea pedis
     Dosage: OTHER QUANTITY : 1 SPRAY(S);?FREQUENCY : DAILY;?
     Route: 061
  3. UNSPECIFIED INGREDIENT [Concomitant]
     Active Substance: UNSPECIFIED INGREDIENT
  4. BENZOTATE [Concomitant]
  5. PREDNISONE [Concomitant]
     Active Substance: PREDNISONE
  6. ALBUTEROL [Concomitant]
     Active Substance: ALBUTEROL
  7. TRELEGY ELLIPTA [Concomitant]
     Active Substance: FLUTICASONE FUROATE\UMECLIDINIUM BROMIDE\VILANTEROL TRIFENATATE
  8. ALEVE [Concomitant]
     Active Substance: NAPROXEN SODIUM
  9. CENTRUM ONE A DAY [Concomitant]

REACTIONS (12)
  - Recalled product administered [None]
  - COVID-19 [None]
  - Anaemia [None]
  - General physical health deterioration [None]
  - Economic problem [None]
  - Chemical poisoning [None]
  - Heart rate increased [None]
  - Confusional state [None]
  - Thrombosis [None]
  - Pulmonary mass [None]
  - Immature granulocyte count increased [None]
  - Lymphocyte count increased [None]

NARRATIVE: CASE EVENT DATE: 20211025
